FAERS Safety Report 11143895 (Version 1)
Quarter: 2015Q2

REPORT INFORMATION
  Report Type: Spontaneous
  Country: FR (occurrence: FR)
  Receive Date: 20150528
  Receipt Date: 20150528
  Transmission Date: 20150821
  Serious: Yes (Hospitalization)
  Sender: FDA-Public Use
  Company Number: FR-SA-2015SA069508

PATIENT
  Age: 69 Year
  Sex: Female

DRUGS (7)
  1. COAPROVEL [Suspect]
     Active Substance: HYDROCHLOROTHIAZIDE\IRBESARTAN
     Route: 065
     Dates: end: 20150314
  2. CRESTOR [Concomitant]
     Active Substance: ROSUVASTATIN CALCIUM
     Route: 065
     Dates: end: 20150314
  3. URAPIDIL [Suspect]
     Active Substance: URAPIDIL
     Route: 065
     Dates: end: 20150314
  4. LEVOTHYROX [Concomitant]
     Active Substance: LEVOTHYROXINE
     Route: 065
     Dates: end: 20150314
  5. ATENOLOL. [Suspect]
     Active Substance: ATENOLOL
     Route: 065
     Dates: end: 20150314
  6. VERAPAMIL [Suspect]
     Active Substance: VERAPAMIL HYDROCHLORIDE
     Route: 065
     Dates: end: 20150314
  7. HYPERIUM [Suspect]
     Active Substance: RILMENIDINE PHOSPHATE
     Route: 065
     Dates: end: 20150314

REACTIONS (3)
  - Bradycardia [Recovered/Resolved]
  - Hypercapnic coma [Recovered/Resolved]
  - Hypotension [Recovered/Resolved]

NARRATIVE: CASE EVENT DATE: 20150314
